FAERS Safety Report 5425739-0 (Version None)
Quarter: 2007Q3

REPORT INFORMATION
  Report Type: 
  Country: None (occurrence: None)
  Receive Date: 20070824
  Receipt Date: 20070812
  Transmission Date: 20080115
  Serious: Yes (Other)
  Sender: FDA-Public Use
  Company Number: US-PFIZER INC-2007066463

PATIENT
  Sex: Female
  Weight: 54.545 kg

DRUGS (12)
  1. CHANTIX [Suspect]
     Indication: SMOKING CESSATION THERAPY
     Dosage: FREQ:DAILY: EVERY DAY
     Route: 048
  2. TRAZODONE HCL [Concomitant]
     Dosage: TEXT:AT NIGHT
  3. AGGRENOX [Concomitant]
  4. ASPIRIN [Concomitant]
     Indication: PROPHYLAXIS
  5. DIURETICS [Concomitant]
  6. ADVAIR DISKUS 100/50 [Concomitant]
  7. COMBIVENT [Concomitant]
  8. NEXIUM [Concomitant]
     Indication: BARRETT'S OESOPHAGUS
  9. XANAX [Concomitant]
  10. LISINOPRIL [Concomitant]
     Indication: HYPERTENSION
     Dosage: TEXT:IN EVENING
  11. CADUET [Concomitant]
     Indication: HYPERTENSION
  12. ESTROGENS [Concomitant]

REACTIONS (12)
  - ASTHENIA [None]
  - BLOOD SODIUM DECREASED [None]
  - COLD SWEAT [None]
  - DECREASED APPETITE [None]
  - DIZZINESS [None]
  - DYSGEUSIA [None]
  - FEELING HOT [None]
  - FORMICATION [None]
  - HYPOTENSION [None]
  - INSOMNIA [None]
  - STOMACH DISCOMFORT [None]
  - WEIGHT DECREASED [None]
